FAERS Safety Report 19188009 (Version 1)
Quarter: 2021Q2

REPORT INFORMATION
  Report Type: Other
  Country: JP (occurrence: JP)
  Receive Date: 20210428
  Receipt Date: 20210428
  Transmission Date: 20210717
  Serious: Yes (Death, Other)
  Sender: FDA-Public Use
  Company Number: JP-ROCHE-2817132

PATIENT
  Age: 66 Year
  Sex: Male

DRUGS (6)
  1. METHYLPREDNISOLONE. [Concomitant]
     Active Substance: METHYLPREDNISOLONE
  2. PEMETREXED. [Concomitant]
     Active Substance: PEMETREXED
  3. ATEZOLIZUMAB. [Suspect]
     Active Substance: ATEZOLIZUMAB
     Indication: LUNG NEOPLASM MALIGNANT
     Route: 065
  4. OSIMERTINIB. [Concomitant]
     Active Substance: OSIMERTINIB
  5. CARBOPLATIN. [Concomitant]
     Active Substance: CARBOPLATIN
  6. AFATINIB [Concomitant]
     Active Substance: AFATINIB

REACTIONS (2)
  - Pneumonia [Unknown]
  - Lung neoplasm malignant [Fatal]
